FAERS Safety Report 8509924 (Version 4)
Quarter: 2013Q1

REPORT INFORMATION
  Report Type: Spontaneous
  Country: DE (occurrence: DE)
  Receive Date: 20120413
  Receipt Date: 20130207
  Transmission Date: 20140127
  Serious: Yes (Hospitalization)
  Sender: FDA-Public Use
  Company Number: DE-ABBOTT-12P-062-0924548-00

PATIENT
  Age: 55 Year
  Sex: Male

DRUGS (11)
  1. HUMIRA 40 MG/0.8 ML PEN [Suspect]
     Indication: ANKYLOSING SPONDYLITIS
     Route: 058
     Dates: start: 20081106, end: 20120408
  2. CORTISONE [Concomitant]
     Indication: PRODUCT USED FOR UNKNOWN INDICATION
     Dosage: 5 MG DAILY
  3. OXYCODON [Concomitant]
     Indication: PRODUCT USED FOR UNKNOWN INDICATION
  4. L-THYROXIN [Concomitant]
     Indication: PRODUCT USED FOR UNKNOWN INDICATION
  5. DICLOFENAC [Concomitant]
     Indication: PRODUCT USED FOR UNKNOWN INDICATION
  6. LISINOPRIL [Concomitant]
     Indication: PRODUCT USED FOR UNKNOWN INDICATION
  7. TORASEMID [Concomitant]
     Indication: PRODUCT USED FOR UNKNOWN INDICATION
  8. OMEPRAZOL [Concomitant]
     Indication: PRODUCT USED FOR UNKNOWN INDICATION
  9. SIMVASTATIN [Concomitant]
     Indication: PRODUCT USED FOR UNKNOWN INDICATION
  10. CARBIMAZOL [Concomitant]
     Indication: PRODUCT USED FOR UNKNOWN INDICATION
  11. ANTIDIABETICS [Concomitant]
     Indication: PRODUCT USED FOR UNKNOWN INDICATION

REACTIONS (2)
  - Renal failure [Recovering/Resolving]
  - Renal cancer [Recovering/Resolving]
